FAERS Safety Report 8826259 (Version 1)
Quarter: 2012Q4

REPORT INFORMATION
  Report Type: 
  Country: US (occurrence: US)
  Receive Date: 20121005
  Receipt Date: 20121005
  Transmission Date: 20130627
  Serious: Yes (Other)
  Sender: FDA-Public Use
  Company Number: US-PFIZER INC-2012244433

PATIENT
  Age: 40 Year
  Sex: Female
  Weight: 67.57 kg

DRUGS (5)
  1. ALAVERT [Suspect]
     Indication: NASOPHARYNGITIS
     Dosage: one tablet, every twelve hours
     Route: 048
     Dates: start: 20120930, end: 20121001
  2. ALAVERT [Suspect]
     Indication: OROPHARYNGEAL PAIN
  3. ALAVERT [Suspect]
     Indication: HEADACHE
  4. ALAVERT [Suspect]
     Indication: EAR DISCOMFORT
  5. LOW-OGESTREL [Concomitant]
     Indication: CONTRACEPTION
     Dosage: 0.3 mg, daily

REACTIONS (8)
  - Aphonia [Recovered/Resolved]
  - Dyspnoea [Unknown]
  - Drug ineffective [Unknown]
  - Dry mouth [Recovered/Resolved]
  - Dry throat [Recovered/Resolved]
  - Cough [Recovered/Resolved]
  - Chest pain [Recovered/Resolved]
  - Productive cough [Unknown]
